FAERS Safety Report 9351540 (Version 2)
Quarter: 2013Q3

REPORT INFORMATION
  Report Type: Spontaneous
  Country: US (occurrence: US)
  Receive Date: 20130617
  Receipt Date: 20130703
  Transmission Date: 20140515
  Serious: No
  Sender: FDA-Public Use
  Company Number: US-PFIZER INC-2013180022

PATIENT
  Age: 46 Year
  Sex: Female

DRUGS (12)
  1. EFFEXOR XR [Suspect]
     Dosage: UNK, 1X/DAY
  2. NORVASC [Suspect]
     Dosage: UNK, 1X/DAY
  3. DEPO-PROVERA [Suspect]
     Dosage: 150 MG/ML, (EVERY 13 WEEKS)
     Route: 058
  4. FUROSEMIDE [Suspect]
     Dosage: UNK
  5. LIPITOR [Suspect]
     Dosage: 40 MG, 1X/DAY
  6. SYNTHROID [Suspect]
     Dosage: UNK
  7. NEXIUM [Suspect]
     Dosage: UNK
  8. ASPIRIN [Suspect]
     Dosage: UNK
  9. BONINE [Suspect]
     Dosage: UNK
  10. TOPROL XL [Suspect]
     Dosage: UNK
  11. CYCLOBENZAPRINE [Suspect]
     Dosage: UNK
  12. LIDODERM [Suspect]
     Dosage: UNK

REACTIONS (1)
  - Drug hypersensitivity [Unknown]
